FAERS Safety Report 22623083 (Version 2)
Quarter: 2024Q4

REPORT INFORMATION
  Report Type: Report from Study
  Country: DE (occurrence: DE)
  Receive Date: 20230621
  Receipt Date: 20241022
  Transmission Date: 20250114
  Serious: Yes (Congenital Anomaly, Other)
  Sender: UCB
  Company Number: DE-UCBSA-2023030237

PATIENT

DRUGS (1)
  1. LACOSAMIDE [Suspect]
     Active Substance: LACOSAMIDE
     Indication: Partial seizures
     Dosage: UNK,,MEDIAN DOSE OF 200 MG DAILY
     Route: 064

REACTIONS (3)
  - Coarctation of the aorta [Not Recovered/Not Resolved]
  - Atrial septal defect [Not Recovered/Not Resolved]
  - Maternal exposure during pregnancy [Unknown]
